FAERS Safety Report 9422030 (Version 1)
Quarter: 2013Q3

REPORT INFORMATION
  Report Type: Spontaneous
  Country: CY (occurrence: CY)
  Receive Date: 20130726
  Receipt Date: 20130726
  Transmission Date: 20140515
  Serious: Yes (Life-Threatening, Hospitalization, Other)
  Sender: FDA-Public Use
  Company Number: CY-JNJFOC-20130711930

PATIENT
  Age: 44 Year
  Sex: Female

DRUGS (3)
  1. TOPAMAX [Suspect]
     Indication: BINGE EATING
     Route: 048
     Dates: start: 20130220, end: 20130712
  2. WELLBUTRIN [Suspect]
     Indication: DEPRESSION
     Route: 048
     Dates: start: 20121130
  3. CRESTOR [Concomitant]
     Indication: BLOOD CHOLESTEROL
     Route: 065
     Dates: start: 201201

REACTIONS (9)
  - Bone marrow toxicity [Recovering/Resolving]
  - Thrombocytopenia [Recovering/Resolving]
  - Leukopenia [Recovering/Resolving]
  - Ecchymosis [Unknown]
  - Off label use [Unknown]
  - Contusion [Unknown]
  - Headache [Unknown]
  - Pain in jaw [Unknown]
  - Epistaxis [Unknown]
